FAERS Safety Report 5127339-9 (Version None)
Quarter: 2006Q4

REPORT INFORMATION
  Report Type: 
  Country: None (occurrence: None)
  Receive Date: 20061010
  Receipt Date: 20060928
  Transmission Date: 20070319
  Serious: Yes (Hospitalization)
  Sender: FDA-Public Use
  Company Number: 2006117737

PATIENT
  Age: 65 Year
  Sex: Female

DRUGS (2)
  1. ZOLOFT [Suspect]
     Indication: BIPOLAR DISORDER
     Dosage: 100 MG (100 MG, 1 IN 1 D), ORAL
     Route: 048
     Dates: start: 20050214, end: 20060914
  2. VALPROIC ACID [Concomitant]

REACTIONS (1)
  - TOXIC SKIN ERUPTION [None]
